FAERS Safety Report 5888952-4 (Version None)
Quarter: 2008Q3

REPORT INFORMATION
  Report Type: 
  Country: None (occurrence: None)
  Receive Date: 20080918
  Receipt Date: 20080918
  Transmission Date: 20090109
  Serious: No
  Sender: FDA-Public Use
  Company Number: None

PATIENT
  Sex: Male
  Weight: 90.95 kg

DRUGS (4)
  1. DOCETAXEL [Suspect]
     Dosage: 154 MG
  2. LEUPROLIDE ACETATE [Suspect]
     Dosage: 45 MG
  3. PREDNISONE [Suspect]
     Dosage: 10 MG
  4. CASODEX [Suspect]
     Dosage: 6750 MG

REACTIONS (2)
  - NEUTROPENIA [None]
  - NEUTROPHIL COUNT INCREASED [None]
